FAERS Safety Report 25699688 (Version 1)
Quarter: 2025Q3

REPORT INFORMATION
  Report Type: Spontaneous
  Country: PE (occurrence: PE)
  Receive Date: 20250819
  Receipt Date: 20250819
  Transmission Date: 20251020
  Serious: Yes (Other)
  Sender: AIPING PHARMACEUTICAL
  Company Number: PE-AIPING-2025AILIT00128

PATIENT
  Age: 67 Year
  Sex: Female

DRUGS (7)
  1. PREDNISONE [Suspect]
     Active Substance: PREDNISONE
     Indication: Hypoglycaemia
     Route: 048
  2. PREDNISONE [Suspect]
     Active Substance: PREDNISONE
     Indication: Hyperthyroidism
  3. NEBIVOLOL [Concomitant]
     Active Substance: NEBIVOLOL
     Indication: Hypertension
     Route: 065
  4. DIOSMIN [Concomitant]
     Active Substance: DIOSMIN
     Route: 065
  5. HESPERIDIN [Concomitant]
     Active Substance: HESPERIDIN
     Route: 065
  6. METHIMAZOLE [Concomitant]
     Active Substance: METHIMAZOLE
     Indication: Graves^ disease
     Route: 048
  7. IODINE [Concomitant]
     Active Substance: IODINE
     Indication: Hyperthyroidism
     Route: 065

REACTIONS (1)
  - Osteonecrosis [Recovering/Resolving]
